FAERS Safety Report 8072155-1 (Version None)
Quarter: 2012Q1

REPORT INFORMATION
  Report Type: 
  Country: None (occurrence: None)
  Receive Date: 20120126
  Receipt Date: 20120113
  Transmission Date: 20120608
  Serious: Yes (Other)
  Sender: FDA-Public Use
  Company Number: US-ELI_LILLY_AND_COMPANY-US201111004271

PATIENT
  Sex: Male
  Weight: 63.946 kg

DRUGS (8)
  1. STRATTERA [Suspect]
     Indication: ATTENTION DEFICIT/HYPERACTIVITY DISORDER
     Dosage: 10 MG, QD
     Route: 048
     Dates: start: 20100408
  2. ZOLOFT [Concomitant]
     Dosage: 100 MG, QD
  3. STRATTERA [Suspect]
     Dosage: 40 MG, QD
     Route: 048
  4. STRATTERA [Suspect]
     Dosage: 60 MG, QD
     Route: 048
     Dates: start: 20110801, end: 20111001
  5. STRATTERA [Suspect]
     Dosage: 10 MG, QD
     Route: 048
  6. ZOLOFT [Concomitant]
     Dosage: 150 MG, QD
  7. STRATTERA [Suspect]
     Dosage: 50 MG, QD
     Route: 048
     Dates: start: 20110801
  8. ZOLOFT [Concomitant]
     Dosage: 50 MG, EACH EVENING

REACTIONS (1)
  - SUICIDAL IDEATION [None]
